FAERS Safety Report 8922120 (Version 1)
Quarter: 2012Q4

REPORT INFORMATION
  Report Type: Spontaneous
  Country: IT (occurrence: None)
  Receive Date: 20121109
  Receipt Date: 20121109
  Transmission Date: 20130627
  Serious: Yes (Other)
  Sender: FDA-Public Use
  Company Number: 2012S1000231

PATIENT
  Age: 57 Year
  Sex: Male
  Weight: 95 kg

DRUGS (3)
  1. CUBICIN [Suspect]
     Indication: INTERVERTEBRAL DISCITIS
     Route: 042
     Dates: start: 20111110, end: 20111220
  2. LEVOFLOXACIN [Concomitant]
  3. FLUOROQUINOLONES [Concomitant]

REACTIONS (3)
  - Pyrexia [None]
  - Off label use [None]
  - Skin reaction [None]
